FAERS Safety Report 8814278 (Version 1)
Quarter: 2012Q4

REPORT INFORMATION
  Report Type: Spontaneous
  Country: GB (occurrence: None)
  Receive Date: 20120925
  Receipt Date: 20120925
  Transmission Date: 20130627
  Serious: Yes (Disabling)
  Sender: FDA-Public Use
  Company Number: AUR-APL-2012-04087

PATIENT
  Age: 44 Year
  Sex: Female
  Weight: 59.87 kg

DRUGS (4)
  1. CITALOPRAM (CITALOPRAM) [Suspect]
     Indication: ANXIETY
     Route: 048
     Dates: start: 20110812, end: 20111008
  2. MIRTAZAPINE (MIRTAZAPINE) [Concomitant]
  3. PROPRANOLOL (PROPRANOLOL) [Concomitant]
  4. SERTRALINE HYDROCHLORIDE (SERTRALINE HYDROCHLORIDE) [Concomitant]

REACTIONS (2)
  - Chest pain [None]
  - Chest discomfort [None]
